FAERS Safety Report 4600246-3 (Version None)
Quarter: 2005Q1

REPORT INFORMATION
  Report Type: 
  Country: None (occurrence: None)
  Receive Date: 20050307
  Receipt Date: 20050301
  Transmission Date: 20050727
  Serious: Yes (Other)
  Sender: FDA-Public Use
  Company Number: BR-GLAXOSMITHKLINE-A0548243A

PATIENT
  Age: 61 Year
  Sex: Male
  Weight: 74 kg

DRUGS (1)
  1. NARAMIG [Suspect]
     Indication: HEADACHE
     Dosage: .5TAB SEE DOSAGE TEXT
     Route: 048
     Dates: start: 20041001

REACTIONS (2)
  - DRUG DEPENDENCE [None]
  - MEDICATION ERROR [None]
